FAERS Safety Report 11314310 (Version 1)
Quarter: 2015Q3

REPORT INFORMATION
  Report Type: Spontaneous
  Country: FR (occurrence: FR)
  Receive Date: 20150727
  Receipt Date: 20150727
  Transmission Date: 20151125
  Serious: Yes (Life-Threatening)
  Sender: FDA-Public Use
  Company Number: FR-VIIV HEALTHCARE LIMITED-FR2015GSK104927

PATIENT
  Age: 4 Day
  Sex: Female
  Weight: 4 kg

DRUGS (4)
  1. RETROVIR [Suspect]
     Active Substance: ZIDOVUDINE
     Indication: ANTIVIRAL PROPHYLAXIS
     Dosage: 8 MG, UNK
     Dates: start: 20150618, end: 20150622
  2. VIRAMUNE [Concomitant]
     Active Substance: NEVIRAPINE
  3. RETROVIR [Suspect]
     Active Substance: ZIDOVUDINE
     Dosage: 80 MG, UNK
     Dates: start: 20150622
  4. EPIVIR [Concomitant]
     Active Substance: LAMIVUDINE
     Dosage: UNK
     Dates: start: 20150618

REACTIONS (4)
  - Medication error [Unknown]
  - Device use error [Unknown]
  - Hyperglycaemia [Recovered/Resolved]
  - Incorrect dose administered [Unknown]

NARRATIVE: CASE EVENT DATE: 20150622
